FAERS Safety Report 5255436-6 (Version None)
Quarter: 2007Q1

REPORT INFORMATION
  Report Type: 
  Country: None (occurrence: None)
  Receive Date: 20070228
  Receipt Date: 20070222
  Transmission Date: 20070707
  Serious: Yes (Hospitalization)
  Sender: FDA-Public Use
  Company Number: 2007SP003027

PATIENT
  Sex: 0

DRUGS (1)
  1. TEMODAL (TAMOZOLOMIDE) (TEMOZOLOMIDE) [Suspect]
     Indication: DRUG USE FOR UNKNOWN INDICATION
     Dosage: PO
     Route: 048

REACTIONS (2)
  - CHILLS [None]
  - PYREXIA [None]
